FAERS Safety Report 15105273 (Version 1)
Quarter: 2018Q3

REPORT INFORMATION
  Report Type: Other
  Country: DE (occurrence: DE)
  Receive Date: 20180704
  Receipt Date: 20180704
  Transmission Date: 20181010
  Serious: No
  Sender: FDA-Public Use
  Company Number: DE-LUPIN PHARMACEUTICALS INC.-2018-02265

PATIENT
  Age: 53 Year
  Sex: Male

DRUGS (2)
  1. PROPECIA [Suspect]
     Active Substance: FINASTERIDE
     Indication: PRODUCT USED FOR UNKNOWN INDICATION
     Dosage: UNK
     Route: 048
     Dates: start: 2003
  2. SIMVASTATIN TABLETS [Suspect]
     Active Substance: SIMVASTATIN
     Indication: PRODUCT USED FOR UNKNOWN INDICATION
     Dosage: 20 MG, QD (IN THE EVENING)
     Route: 048
     Dates: start: 2017

REACTIONS (2)
  - Abdominal rigidity [Not Recovered/Not Resolved]
  - Lipoma of breast [Not Recovered/Not Resolved]

NARRATIVE: CASE EVENT DATE: 2017
